FAERS Safety Report 9693871 (Version 2)
Quarter: 2013Q4

REPORT INFORMATION
  Report Type: Spontaneous
  Country: NL (occurrence: NL)
  Receive Date: 20131118
  Receipt Date: 20131129
  Transmission Date: 20140711
  Serious: Yes (Life-Threatening, Hospitalization)
  Sender: FDA-Public Use
  Company Number: NL-TEVA-443231ISR

PATIENT
  Age: 23 Year
  Sex: Female
  Weight: 70 kg

DRUGS (2)
  1. IBUPROFEN [Suspect]
     Indication: CONGENITAL MULTIPLEX ARTHROGRYPOSIS
     Dosage: APPROXIMATELY 3 TO 4 TABLETS IN APPROXIMATELY 3 DAYS
     Route: 048
     Dates: start: 2000, end: 2000
  2. DIANE-35 TABLET OMHULD [Interacting]
     Indication: ACNE
     Dosage: 1 DOSAGE FORMS DAILY;
     Route: 048
     Dates: start: 2000, end: 2001

REACTIONS (3)
  - Budd-Chiari syndrome [Recovered/Resolved with Sequelae]
  - Deep vein thrombosis [Recovered/Resolved with Sequelae]
  - Drug interaction [Recovered/Resolved with Sequelae]
